FAERS Safety Report 17734909 (Version 1)
Quarter: 2020Q2

REPORT INFORMATION
  Report Type: Spontaneous
  Country: US (occurrence: US)
  Receive Date: 20200501
  Receipt Date: 20200501
  Transmission Date: 20200714
  Serious: Yes (Other)
  Sender: FDA-Public Use
  Company Number: US-RADIUS HEALTH, INC.-2020US000663

PATIENT
  Sex: Female

DRUGS (2)
  1. TYMLOS [Suspect]
     Active Substance: ABALOPARATIDE
     Indication: OSTEOPOROSIS POSTMENOPAUSAL
  2. TYMLOS [Suspect]
     Active Substance: ABALOPARATIDE
     Indication: ARTHROPATHY
     Dosage: 80 MCG, QD
     Route: 058
     Dates: start: 20180401, end: 201909

REACTIONS (2)
  - Nephrolithiasis [Unknown]
  - Off label use [Unknown]
